FAERS Safety Report 7115107-8 (Version None)
Quarter: 2010Q4

REPORT INFORMATION
  Report Type: 
  Country: None (occurrence: None)
  Receive Date: 20101122
  Receipt Date: 20101115
  Transmission Date: 20110411
  Serious: Yes (Other)
  Sender: FDA-Public Use
  Company Number: JP-CELGENEUS-087-21880-10111724

PATIENT
  Sex: Male
  Weight: 60.4 kg

DRUGS (9)
  1. REVLIMID [Suspect]
     Indication: MULTIPLE MYELOMA
     Route: 048
     Dates: start: 20100928, end: 20101018
  2. LENADEX [Suspect]
     Indication: MULTIPLE MYELOMA
     Route: 048
     Dates: start: 20100928, end: 20101001
  3. LENADEX [Suspect]
     Route: 048
     Dates: start: 20101006, end: 20101009
  4. LENADEX [Suspect]
     Route: 048
     Dates: start: 20101014, end: 20101017
  5. AMLODIPINE [Concomitant]
     Indication: HYPERTENSION
     Route: 048
     Dates: start: 20100928, end: 20101109
  6. WARFARIN [Concomitant]
     Indication: PROPHYLAXIS
     Route: 048
     Dates: start: 20100928, end: 20101109
  7. FENTANYL CITRATE [Concomitant]
     Route: 062
     Dates: start: 20100928, end: 20101109
  8. FUROSEMIDE [Concomitant]
     Route: 048
     Dates: start: 20100928, end: 20101109
  9. PREDNISOLONE [Concomitant]
     Route: 048
     Dates: start: 20100928, end: 20101109

REACTIONS (3)
  - MENTAL DISORDER [None]
  - PYREXIA [None]
  - THROMBOCYTOPENIA [None]
